FAERS Safety Report 12928530 (Version 1)
Quarter: 2016Q4

REPORT INFORMATION
  Report Type: Report from Study
  Country: AU (occurrence: AU)
  Receive Date: 20161110
  Receipt Date: 20161110
  Transmission Date: 20170207
  Serious: Yes (Other)
  Sender: FDA-Public Use
  Company Number: AU-ACCORD-045465

PATIENT
  Age: 28 Year
  Sex: Female

DRUGS (3)
  1. PHENYTOIN/PHENYTOIN CALCIUM/PHENYTOIN SODIUM [Concomitant]
     Indication: EPILEPSY
  2. VALPROIC ACID. [Concomitant]
     Active Substance: VALPROIC ACID
     Indication: EPILEPSY
  3. LEVETIRACETAM. [Suspect]
     Active Substance: LEVETIRACETAM
     Indication: EPILEPSY

REACTIONS (5)
  - Persecutory delusion [Recovered/Resolved]
  - Delusion of grandeur [Recovered/Resolved]
  - Psychotic disorder [Recovered/Resolved]
  - Aggression [Recovered/Resolved]
  - Hallucination, auditory [Recovered/Resolved]
